FAERS Safety Report 23607837 (Version 1)
Quarter: 2024Q1

REPORT INFORMATION
  Report Type: Spontaneous
  Country: US (occurrence: US)
  Receive Date: 20240307
  Receipt Date: 20240307
  Transmission Date: 20240410
  Serious: Yes (Death, Hospitalization)
  Sender: FDA-Public Use
  Company Number: US-MYLANLABS-2024M1021438

PATIENT
  Age: 19 Year
  Sex: Male

DRUGS (4)
  1. ATOVAQUONE\PROGUANIL [Suspect]
     Active Substance: ATOVAQUONE\PROGUANIL
     Indication: Cerebral malaria
     Dosage: UNK
     Route: 065
  2. ATOVAQUONE\PROGUANIL [Suspect]
     Active Substance: ATOVAQUONE\PROGUANIL
     Indication: Plasmodium falciparum infection
  3. ARTESUNATE [Suspect]
     Active Substance: ARTESUNATE
     Indication: Cerebral malaria
     Dosage: UNK
     Route: 065
  4. ARTESUNATE [Suspect]
     Active Substance: ARTESUNATE
     Indication: Plasmodium falciparum infection

REACTIONS (1)
  - Drug ineffective [Fatal]
